FAERS Safety Report 10478294 (Version 2)
Quarter: 2015Q2

REPORT INFORMATION
  Report Type: Spontaneous
  Country: BR (occurrence: BR)
  Receive Date: 20140926
  Receipt Date: 20150415
  Transmission Date: 20150821
  Serious: Yes (Other)
  Sender: FDA-Public Use
  Company Number: BR-ABBVIE-14P-020-1288669-00

PATIENT
  Age: 7 Year
  Sex: Male

DRUGS (3)
  1. DEPAKENE [Suspect]
     Active Substance: VALPROIC ACID
     Route: 065
  2. DEPAKENE [Suspect]
     Active Substance: VALPROIC ACID
     Indication: PRODUCT USED FOR UNKNOWN INDICATION
     Route: 065
  3. DEPAKENE [Suspect]
     Active Substance: VALPROIC ACID
     Route: 065

REACTIONS (14)
  - Seizure [Recovered/Resolved]
  - Aspiration bronchial [Unknown]
  - Visual impairment [Unknown]
  - Tremor [Not Recovered/Not Resolved]
  - Seborrhoea [Not Recovered/Not Resolved]
  - Mood altered [Not Recovered/Not Resolved]
  - Headache [Not Recovered/Not Resolved]
  - Tinnitus [Not Recovered/Not Resolved]
  - Muscle rigidity [Unknown]
  - Dizziness [Not Recovered/Not Resolved]
  - Alopecia [Not Recovered/Not Resolved]
  - Tongue disorder [Unknown]
  - Body temperature decreased [Unknown]
  - Product use issue [Unknown]

NARRATIVE: CASE EVENT DATE: 2014
